FAERS Safety Report 6382958-7 (Version None)
Quarter: 2009Q3

REPORT INFORMATION
  Report Type: 
  Country: None (occurrence: None)
  Receive Date: 20090928
  Receipt Date: 20090928
  Transmission Date: 20100115
  Serious: Yes (Other)
  Sender: FDA-Public Use
  Company Number: None

PATIENT
  Age: 54 Year
  Sex: Female
  Weight: 56.6996 kg

DRUGS (1)
  1. ZICAM NASAL GEL SWABS [Suspect]
     Indication: NASOPHARYNGITIS
     Dosage: FOLLOWED MANUFACTURER'S
     Dates: start: 20080101

REACTIONS (3)
  - DRY MOUTH [None]
  - DYSGEUSIA [None]
  - SALIVARY HYPERSECRETION [None]
